FAERS Safety Report 12959317 (Version 1)
Quarter: 2016Q4

REPORT INFORMATION
  Report Type: Spontaneous
  Country: US (occurrence: US)
  Receive Date: 20161118
  Receipt Date: 20161118
  Transmission Date: 20170207
  Serious: Yes (Hospitalization)
  Sender: FDA-Public Use
  Company Number: None

PATIENT
  Age: 77 Year
  Sex: Male

DRUGS (2)
  1. ENOXAPARIN [Suspect]
     Active Substance: ENOXAPARIN
     Indication: DRUG THERAPY
     Route: 058
     Dates: start: 20161114, end: 20161117
  2. WARFARIN [Suspect]
     Active Substance: WARFARIN
     Indication: CARDIAC VALVE DISEASE
     Route: 048
     Dates: start: 20160421, end: 20161117

REACTIONS (1)
  - Procedural haemorrhage [None]

NARRATIVE: CASE EVENT DATE: 20161117
